FAERS Safety Report 17647351 (Version 1)
Quarter: 2020Q2

REPORT INFORMATION
  Report Type: Spontaneous
  Country: DE (occurrence: DE)
  Receive Date: 20200408
  Receipt Date: 20200408
  Transmission Date: 20200713
  Serious: Yes (Other)
  Sender: FDA-Public Use
  Company Number: DE-SA-2020SA086168

PATIENT
  Age: 32 Year
  Sex: Female
  Weight: 77 kg

DRUGS (1)
  1. FERLIXIT [Suspect]
     Active Substance: SODIUM FERRIC GLUCONATE COMPLEX
     Indication: IRON DEFICIENCY ANAEMIA
     Dosage: 3. INFUSION
     Route: 042
     Dates: start: 20200228, end: 2020

REACTIONS (3)
  - Cough [Unknown]
  - Anaphylactic reaction [Unknown]
  - Respiratory distress [Unknown]

NARRATIVE: CASE EVENT DATE: 20200228
